FAERS Safety Report 23766300 (Version 7)
Quarter: 2025Q2

REPORT INFORMATION
  Report Type: Report from Study
  Country: US (occurrence: US)
  Receive Date: 20240422
  Receipt Date: 20250508
  Transmission Date: 20250717
  Serious: Yes (Hospitalization, Other)
  Sender: TAKEDA
  Company Number: US-TAKEDA-2023TUS072611

PATIENT
  Age: 49 Year
  Sex: Female
  Weight: 53 kg

DRUGS (78)
  1. TEDUGLUTIDE [Suspect]
     Active Substance: TEDUGLUTIDE
     Indication: Short-bowel syndrome
     Dosage: 2.5 MILLIGRAM, QD
  2. TEDUGLUTIDE [Suspect]
     Active Substance: TEDUGLUTIDE
     Dosage: 2.5 MILLIGRAM, QD
  3. TEDUGLUTIDE [Suspect]
     Active Substance: TEDUGLUTIDE
     Dosage: 0.2 MILLILITER, QD
  4. TEDUGLUTIDE [Suspect]
     Active Substance: TEDUGLUTIDE
     Dosage: 2.5 MILLIGRAM, QD
  5. TEDUGLUTIDE [Suspect]
     Active Substance: TEDUGLUTIDE
     Dosage: 2.5 MILLIGRAM, QD
     Dates: start: 2022
  6. TEDUGLUTIDE [Suspect]
     Active Substance: TEDUGLUTIDE
     Dosage: 2.5 MILLIGRAM, QD
  7. TEDUGLUTIDE [Suspect]
     Active Substance: TEDUGLUTIDE
     Dosage: 2.9 MILLIGRAM, QD
  8. TEDUGLUTIDE [Suspect]
     Active Substance: TEDUGLUTIDE
     Dosage: 2.9 MILLIGRAM, QD
  9. TRAMADOL HCL [Concomitant]
     Active Substance: TRAMADOL HYDROCHLORIDE
     Dosage: 100 MILLIGRAM, QD
  10. TRAMADOL HCL [Concomitant]
     Active Substance: TRAMADOL HYDROCHLORIDE
     Dosage: 50 MILLIGRAM, QD
  11. HUMALOG [Concomitant]
     Active Substance: INSULIN LISPRO
  12. PROMETHAZINE HYDROCHLORIDE [Concomitant]
     Active Substance: PROMETHAZINE HYDROCHLORIDE
  13. LANTUS SOLOSTAR [Concomitant]
     Active Substance: INSULIN GLARGINE
  14. METOPROLOL SUCCINATE [Concomitant]
     Active Substance: METOPROLOL SUCCINATE
     Dosage: 25 MILLIGRAM, QD
  15. OXYCODONE HYDROCHLORIDE [Concomitant]
     Active Substance: OXYCODONE HYDROCHLORIDE
  16. REMERON [Concomitant]
     Active Substance: MIRTAZAPINE
  17. REMERON [Concomitant]
     Active Substance: MIRTAZAPINE
  18. ONDANSETRON [Concomitant]
     Active Substance: ONDANSETRON
  19. ONDANSETRON [Concomitant]
     Active Substance: ONDANSETRON
  20. PRILOSEC [Concomitant]
     Active Substance: OMEPRAZOLE MAGNESIUM
  21. LORAZEPAM [Concomitant]
     Active Substance: LORAZEPAM
  22. LORAZEPAM [Concomitant]
     Active Substance: LORAZEPAM
  23. BUPRENORPHINE AND NALOXONE [Concomitant]
     Active Substance: BUPRENORPHINE HYDROCHLORIDE\NALOXONE HYDROCHLORIDE
  24. GABAPENTIN [Concomitant]
     Active Substance: GABAPENTIN
  25. GABAPENTIN [Concomitant]
     Active Substance: GABAPENTIN
  26. GABAPENTIN [Concomitant]
     Active Substance: GABAPENTIN
  27. PROMETHEGAN [Concomitant]
     Active Substance: PROMETHAZINE HYDROCHLORIDE
  28. LEVOTHYROXINE SODIUM [Concomitant]
     Active Substance: LEVOTHYROXINE SODIUM
  29. LEVOTHYROXINE SODIUM [Concomitant]
     Active Substance: LEVOTHYROXINE SODIUM
  30. CLINDAMYCIN HYDROCHLORIDE [Concomitant]
     Active Substance: CLINDAMYCIN HYDROCHLORIDE
  31. ATORVASTATIN CALCIUM [Concomitant]
     Active Substance: ATORVASTATIN CALCIUM
  32. CYANOCOBALAMIN [Concomitant]
     Active Substance: CYANOCOBALAMIN
  33. PREDNISONE [Concomitant]
     Active Substance: PREDNISONE
  34. PREDNISONE [Concomitant]
     Active Substance: PREDNISONE
     Dosage: 5 MILLIGRAM, QD
  35. PREDNISONE [Concomitant]
     Active Substance: PREDNISONE
     Dosage: 10 MILLIGRAM, QD
  36. CYPROHEPTADINE HYDROCHLORIDE [Concomitant]
     Active Substance: CYPROHEPTADINE HYDROCHLORIDE
  37. SCOPOLAMINE [Concomitant]
     Active Substance: SCOPOLAMINE
  38. LAMOTRIGINE [Concomitant]
     Active Substance: LAMOTRIGINE
  39. AZELASTINE HYDROCHLORIDE [Concomitant]
     Active Substance: AZELASTINE HYDROCHLORIDE
  40. BACLOFEN [Concomitant]
     Active Substance: BACLOFEN
  41. DIPHENOXYLATE HYDROCHLORIDE AND ATROPINE SULFATE [Concomitant]
     Active Substance: ATROPINE SULFATE\DIPHENOXYLATE HYDROCHLORIDE
  42. FISH OIL [Concomitant]
     Active Substance: FISH OIL
  43. SUBOXONE [Concomitant]
     Active Substance: BUPRENORPHINE HYDROCHLORIDE\NALOXONE HYDROCHLORIDE
  44. POTASSIUM CHLORIDE [Concomitant]
     Active Substance: POTASSIUM CHLORIDE
  45. HYDROMORPHONE HCL [Concomitant]
     Active Substance: HYDROMORPHONE HYDROCHLORIDE
  46. HYDROXYZINE HYDROCHLORIDE [Concomitant]
     Active Substance: HYDROXYZINE HYDROCHLORIDE
  47. HYDROXYZINE HYDROCHLORIDE [Concomitant]
     Active Substance: HYDROXYZINE HYDROCHLORIDE
     Dosage: 50 MILLIGRAM, BID
  48. LINEZOLID [Concomitant]
     Active Substance: LINEZOLID
  49. SODIUM CHLORIDE [Concomitant]
     Active Substance: SODIUM CHLORIDE
  50. CLONAZEPAM [Concomitant]
     Active Substance: CLONAZEPAM
  51. IMIPRAMINE HYDROCHLORIDE [Concomitant]
     Active Substance: IMIPRAMINE HYDROCHLORIDE
  52. MARINOL [Concomitant]
     Active Substance: DRONABINOL
  53. ONDANSETRON HYDROCHLORIDE [Concomitant]
     Active Substance: ONDANSETRON HYDROCHLORIDE
  54. XIFAXAN [Concomitant]
     Active Substance: RIFAXIMIN
  55. SYNTHROID [Concomitant]
     Active Substance: LEVOTHYROXINE SODIUM
  56. LOMOTIL [Concomitant]
     Active Substance: ATROPINE SULFATE\DIPHENOXYLATE HYDROCHLORIDE
  57. PROTONIX [Concomitant]
     Active Substance: PANTOPRAZOLE SODIUM
  58. PROTONIX [Concomitant]
     Active Substance: PANTOPRAZOLE SODIUM
  59. SPIRIVA [Concomitant]
     Active Substance: TIOTROPIUM BROMIDE MONOHYDRATE
  60. VENTOLIN HFA [Concomitant]
     Active Substance: ALBUTEROL SULFATE
  61. BREO ELLIPTA [Concomitant]
     Active Substance: FLUTICASONE FUROATE\VILANTEROL TRIFENATATE
  62. TOPROL XL [Concomitant]
     Active Substance: METOPROLOL SUCCINATE
     Dosage: 25 MILLIGRAM, QD
  63. LIPITOR [Concomitant]
     Active Substance: ATORVASTATIN CALCIUM
  64. HYDROCODONE BITARTRATE AND ACETAMINOPHEN [Concomitant]
     Active Substance: ACETAMINOPHEN\HYDROCODONE BITARTRATE
  65. ZENPEP [Concomitant]
     Active Substance: PANCRELIPASE AMYLASE\PANCRELIPASE LIPASE\PANCRELIPASE PROTEASE
  66. EPIPEN [Concomitant]
     Active Substance: EPINEPHRINE
  67. ATIVAN [Concomitant]
     Active Substance: LORAZEPAM
  68. IBUPROFEN [Concomitant]
     Active Substance: IBUPROFEN
  69. OMEPRAZOLE [Concomitant]
     Active Substance: OMEPRAZOLE
  70. LANTUS [Concomitant]
     Active Substance: INSULIN GLARGINE
  71. DILAUDID [Concomitant]
     Active Substance: HYDROMORPHONE HYDROCHLORIDE
  72. REGLAN [Concomitant]
     Active Substance: METOCLOPRAMIDE HYDROCHLORIDE
  73. ZOFRAN [Concomitant]
     Active Substance: ONDANSETRON HYDROCHLORIDE
  74. LIBRAX [Concomitant]
     Active Substance: CHLORDIAZEPOXIDE HYDROCHLORIDE\CLIDINIUM BROMIDE
  75. Gentop [Concomitant]
  76. SOMA [Concomitant]
     Active Substance: CARISOPRODOL
     Indication: Muscle relaxant therapy
  77. INSULIN NOS [Concomitant]
     Active Substance: INSULIN NOS
  78. MORPHINE SULFATE [Concomitant]
     Active Substance: MORPHINE SULFATE

REACTIONS (11)
  - Gastritis [Not Recovered/Not Resolved]
  - Vascular device infection [Unknown]
  - Blood glucose abnormal [Unknown]
  - Renal failure [Unknown]
  - Pancreatitis [Unknown]
  - Decreased appetite [Unknown]
  - Weight increased [Unknown]
  - Hunger [Unknown]
  - Product dose omission issue [Unknown]
  - Product storage error [Unknown]
  - Injection site induration [Unknown]

NARRATIVE: CASE EVENT DATE: 20241128
